FAERS Safety Report 7342588-7 (Version None)
Quarter: 2011Q1

REPORT INFORMATION
  Report Type: 
  Country: None (occurrence: None)
  Receive Date: 20110310
  Receipt Date: 20110118
  Transmission Date: 20110831
  Serious: Yes (Hospitalization)
  Sender: FDA-Public Use
  Company Number: US-BAYER-201039360NA

PATIENT
  Sex: Female
  Weight: 84.354 kg

DRUGS (11)
  1. TRAZODONE HCL [Concomitant]
     Indication: FIBROMYALGIA
     Dosage: 150 MG, QD
  2. ADVAIR DISKUS 100/50 [Concomitant]
     Dosage: UNK UNK, QD
  3. YASMIN [Suspect]
     Indication: PRODUCT USED FOR UNKNOWN INDICATION
     Route: 048
     Dates: start: 20051001, end: 20060415
  4. CLARITIN [Concomitant]
     Dosage: 10 MG, QD
  5. PAXIL [Concomitant]
     Indication: DEPRESSION
     Dosage: 40 MG, QD
  6. UNCODEABLE ^UNCLASSIFIABLE^ [Concomitant]
     Dosage: 500 MG, PRN
  7. UNCODEABLE ^UNCLASSIFIABLE^ [Concomitant]
     Indication: MULTIPLE ALLERGIES
  8. SYNTHROID [Concomitant]
     Indication: HYPOTHYROIDISM
     Dosage: 137 MG, QD
  9. UNCODEABLE ^UNCLASSIFIABLE^ [Concomitant]
     Indication: NASOPHARYNGITIS
     Dosage: 25 MG, PRN
  10. MARIJUANA [Concomitant]
     Indication: FIBROMYALGIA
  11. UNCODEABLE ^UNCLASSIFIABLE^ [Concomitant]
     Dosage: UNK UNK, PRN

REACTIONS (6)
  - CHOLELITHIASIS [None]
  - CHEST PAIN [None]
  - DYSPNOEA [None]
  - VOMITING [None]
  - NAUSEA [None]
  - CHOLECYSTITIS [None]
